FAERS Safety Report 24446876 (Version 2)
Quarter: 2024Q4

REPORT INFORMATION
  Report Type: Spontaneous
  Country: US (occurrence: US)
  Receive Date: 20241016
  Receipt Date: 20241106
  Transmission Date: 20250115
  Serious: Yes (Life-Threatening, Hospitalization)
  Sender: NOVO NORDISK
  Company Number: US-NOVOPROD-1286911

PATIENT
  Sex: Male

DRUGS (2)
  1. OZEMPIC [Suspect]
     Active Substance: SEMAGLUTIDE
     Indication: Product used for unknown indication
     Dosage: 0.5 MG
     Route: 058
  2. OZEMPIC [Suspect]
     Active Substance: SEMAGLUTIDE
     Dosage: 1MG
     Route: 058

REACTIONS (5)
  - Cardiac pacemaker insertion [Unknown]
  - Aortic valve repair [Unknown]
  - Diabetes mellitus inadequate control [Unknown]
  - Glycosylated haemoglobin increased [Unknown]
  - Off label use [Unknown]

NARRATIVE: CASE EVENT DATE: 20240101
